FAERS Safety Report 14813262 (Version 5)
Quarter: 2018Q3

REPORT INFORMATION
  Report Type: Report from Study
  Country: None (occurrence: US)
  Receive Date: 20180426
  Receipt Date: 20180802
  Transmission Date: 20181010
  Serious: Yes (Other)
  Sender: FDA-Public Use
  Company Number: US-ABBVIE-18K-163-2285486-00

PATIENT
  Sex: Female

DRUGS (2)
  1. HUMIRA [Suspect]
     Active Substance: ADALIMUMAB
     Route: 058
  2. HUMIRA [Suspect]
     Active Substance: ADALIMUMAB
     Indication: RHEUMATOID ARTHRITIS
     Route: 058
     Dates: start: 2015

REACTIONS (26)
  - Foot deformity [Unknown]
  - Laceration [Recovering/Resolving]
  - Stress [Unknown]
  - Peripheral swelling [Not Recovered/Not Resolved]
  - Anxiety [Unknown]
  - Weight decreased [Unknown]
  - Arthralgia [Not Recovered/Not Resolved]
  - Pain in extremity [Not Recovered/Not Resolved]
  - Thermal burn [Unknown]
  - Pain [Not Recovered/Not Resolved]
  - Gait inability [Unknown]
  - Grip strength decreased [Unknown]
  - Mobility decreased [Not Recovered/Not Resolved]
  - Swelling [Unknown]
  - Vaginal haemorrhage [Unknown]
  - Accident [Unknown]
  - Rheumatoid arthritis [Not Recovered/Not Resolved]
  - Systemic lupus erythematosus [Not Recovered/Not Resolved]
  - Impaired work ability [Unknown]
  - Drug effect decreased [Unknown]
  - Muscular weakness [Unknown]
  - Intentional product misuse [Unknown]
  - Insomnia [Unknown]
  - Neck pain [Not Recovered/Not Resolved]
  - Back pain [Not Recovered/Not Resolved]
  - Swelling [Not Recovered/Not Resolved]
